FAERS Safety Report 15101313 (Version 1)
Quarter: 2018Q3

REPORT INFORMATION
  Report Type: Spontaneous
  Country: CA (occurrence: CA)
  Receive Date: 20180703
  Receipt Date: 20180703
  Transmission Date: 20181010
  Serious: Yes (Other)
  Sender: FDA-Public Use
  Company Number: CA-JNJFOC-20180638071

PATIENT
  Age: 6 Year
  Sex: Female

DRUGS (2)
  1. SUDAFED [Suspect]
     Active Substance: PSEUDOEPHEDRINE HYDROCHLORIDE
     Route: 048
  2. SUDAFED [Suspect]
     Active Substance: PSEUDOEPHEDRINE HYDROCHLORIDE
     Indication: PRODUCT USED FOR UNKNOWN INDICATION
     Dosage: 1 DOSAGE, ONCE
     Route: 048

REACTIONS (10)
  - Dyskinesia [Recovered/Resolved]
  - Fatigue [Recovered/Resolved]
  - Skin discolouration [Recovered/Resolved]
  - Dysarthria [Recovered/Resolved]
  - Seizure [Recovered/Resolved]
  - Abdominal pain [Recovered/Resolved]
  - Salivary hypersecretion [Recovered/Resolved]
  - Tremor [Recovered/Resolved]
  - Hypokinesia [Recovered/Resolved]
  - Somnolence [Recovered/Resolved]
